FAERS Safety Report 18578558 (Version 2)
Quarter: 2020Q4

REPORT INFORMATION
  Report Type: Spontaneous
  Country: US (occurrence: US)
  Receive Date: 20201204
  Receipt Date: 20201223
  Transmission Date: 20210114
  Serious: No
  Sender: FDA-Public Use
  Company Number: US-GLAXOSMITHKLINE-US2020232841

PATIENT
  Sex: Male

DRUGS (1)
  1. VENTOLIN HFA [Suspect]
     Active Substance: ALBUTEROL SULFATE
     Indication: COVID-19
     Dosage: 2 PUFF(S)
     Route: 055
     Dates: start: 20201123

REACTIONS (3)
  - Product use in unapproved indication [Unknown]
  - Product complaint [Unknown]
  - Wrong technique in product usage process [Unknown]
